FAERS Safety Report 10969737 (Version 1)
Quarter: 2015Q1

REPORT INFORMATION
  Report Type: Spontaneous
  Country: JP (occurrence: None)
  Receive Date: 20150327
  Receipt Date: 20150327
  Transmission Date: 20150721
  Serious: Yes (Life-Threatening, Hospitalization, Other)
  Sender: FDA-Public Use
  Company Number: HRA-MET20150002

PATIENT
  Age: 43 Year
  Sex: Female

DRUGS (7)
  1. METOPIRONE [Suspect]
     Active Substance: METYRAPONE
     Indication: ECTOPIC ACTH SYNDROME
     Route: 048
     Dates: start: 20130821, end: 20131116
  2. DEXAMETHASONE. [Concomitant]
     Active Substance: DEXAMETHASONE
  3. ALFACALCIDOL [Concomitant]
     Active Substance: ALFACALCIDOL
  4. SULFAMETHOXAZOLE [Concomitant]
     Active Substance: SULFAMETHOXAZOLE
  5. HYDROCORTISONE. [Concomitant]
     Active Substance: HYDROCORTISONE
  6. ASPARTATE CALCIUM [Concomitant]
  7. INSULIN GLARGINE [Concomitant]
     Active Substance: INSULIN GLARGINE

REACTIONS (6)
  - Sepsis [None]
  - Cardio-respiratory arrest [None]
  - Cardiogenic shock [None]
  - Urinary tract infection [None]
  - Adrenal insufficiency [None]
  - Pancytopenia [None]

NARRATIVE: CASE EVENT DATE: 20131116
